FAERS Safety Report 21035693 (Version 2)
Quarter: 2023Q1

REPORT INFORMATION
  Report Type: Spontaneous
  Country: FR (occurrence: FR)
  Receive Date: 20220701
  Receipt Date: 20230217
  Transmission Date: 20230417
  Serious: Yes (Hospitalization)
  Sender: FDA-Public Use
  Company Number: None

PATIENT
  Age: 76 Year
  Sex: Male
  Weight: 97 kg

DRUGS (8)
  1. SOLU-MEDROL [Suspect]
     Active Substance: METHYLPREDNISOLONE SODIUM SUCCINATE
     Indication: COVID-19 pneumonia
     Dosage: UNK
     Route: 042
     Dates: start: 20220218
  2. SPIRAMYCIN [Suspect]
     Active Substance: SPIRAMYCIN
     Indication: COVID-19 pneumonia
     Dosage: UNK
     Route: 048
     Dates: start: 20220218
  3. CEFTRIAXONE SODIUM [Suspect]
     Active Substance: CEFTRIAXONE SODIUM
     Indication: COVID-19 pneumonia
     Dosage: UNK
     Route: 048
     Dates: start: 20220218
  4. IVERMECTIN [Suspect]
     Active Substance: IVERMECTIN
     Indication: COVID-19 pneumonia
     Dosage: UNK
     Route: 048
     Dates: start: 20220218, end: 20220222
  5. XARELTO [Suspect]
     Active Substance: RIVAROXABAN
     Indication: COVID-19 pneumonia
     Dosage: UNK
     Route: 048
     Dates: start: 20220218
  6. VASTAREL [Suspect]
     Active Substance: TRIMETAZIDINE DIHYDROCHLORIDE
     Indication: COVID-19 pneumonia
     Dosage: UNK
     Route: 048
     Dates: start: 20220218
  7. PLAQUENIL [Suspect]
     Active Substance: HYDROXYCHLOROQUINE SULFATE
     Indication: COVID-19 pneumonia
     Dosage: UNK
     Route: 048
     Dates: start: 20220218, end: 20220222
  8. SERETIDE [Suspect]
     Active Substance: FLUTICASONE PROPIONATE\SALMETEROL XINAFOATE
     Indication: COVID-19 pneumonia
     Dosage: UNK
     Route: 055
     Dates: start: 20220218

REACTIONS (2)
  - Atrial flutter [Recovered/Resolved]
  - Off label use [Unknown]

NARRATIVE: CASE EVENT DATE: 20220201
